FAERS Safety Report 15655695 (Version 1)
Quarter: 2018Q4

REPORT INFORMATION
  Report Type: Spontaneous
  Country: US (occurrence: US)
  Receive Date: 20181126
  Receipt Date: 20181126
  Transmission Date: 20190205
  Serious: No
  Sender: FDA-Public Use
  Company Number: US-TEVA-2018-US-978660

PATIENT
  Age: 32 Year

DRUGS (2)
  1. XULANE [Concomitant]
     Active Substance: ETHINYL ESTRADIOL\NORELGESTROMIN
  2. CLARAVIS [Suspect]
     Active Substance: ISOTRETINOIN
     Route: 065
     Dates: end: 20181025

REACTIONS (2)
  - Joint swelling [Unknown]
  - Arthralgia [Unknown]

NARRATIVE: CASE EVENT DATE: 20180921
